FAERS Safety Report 8849834 (Version 3)
Quarter: 2013Q1

REPORT INFORMATION
  Report Type: Spontaneous
  Country: US (occurrence: US)
  Receive Date: 20121019
  Receipt Date: 20130116
  Transmission Date: 20140127
  Serious: Yes (Death)
  Sender: FDA-Public Use
  Company Number: US-ELI_LILLY_AND_COMPANY-US201210005744

PATIENT
  Age: 55 Year
  Sex: Female
  Weight: 77.7 kg

DRUGS (20)
  1. ALIMTA [Suspect]
     Indication: NON-SMALL CELL LUNG CANCER STAGE IV
     Dosage: 990 MG, UNK
     Route: 042
     Dates: start: 20120913, end: 20121001
  2. FOLIC ACID [Concomitant]
     Dosage: 0.5 MG, UNK
     Dates: start: 20120910, end: 20121001
  3. VITAMIN B12 [Concomitant]
     Dosage: 1000 UG, UNK
     Dates: start: 20120913, end: 20121001
  4. ERLOTINIB [Concomitant]
  5. CORTICOSTEROID NOS [Concomitant]
     Dosage: 4 MG, BID
     Dates: start: 20120912, end: 20121001
  6. CITALOPRAM [Concomitant]
  7. METOCLOPRAMIDE [Concomitant]
  8. OXYCONTIN [Concomitant]
  9. MIRALAX [Concomitant]
  10. ONDASETRON [Concomitant]
  11. DEXAMETHASONE [Concomitant]
  12. OXYCODONE [Concomitant]
  13. PROMETHAZINE [Concomitant]
  14. ASPIRIN [Concomitant]
  15. SENNA [Concomitant]
  16. LORAZEPAM [Concomitant]
  17. ROSUVASTATIN [Concomitant]
  18. METOPROLOL SUCCINATE [Concomitant]
  19. NITROGLYCERIN [Concomitant]
  20. DALTEPARIN [Concomitant]

REACTIONS (3)
  - Malignant neoplasm progression [Fatal]
  - Hepatic failure [Fatal]
  - Renal failure acute [Fatal]
